FAERS Safety Report 25216446 (Version 3)
Quarter: 2025Q3

REPORT INFORMATION
  Report Type: Spontaneous
  Country: EU (occurrence: EU)
  Receive Date: 20250418
  Receipt Date: 20250810
  Transmission Date: 20251020
  Serious: Yes (Other)
  Sender: ALEXION PHARMACEUTICALS
  Company Number: None

PATIENT
  Age: 70 Year
  Sex: Female
  Weight: 50 kg

DRUGS (4)
  1. SYMBICORT [Suspect]
     Active Substance: BUDESONIDE\FORMOTEROL FUMARATE DIHYDRATE
     Indication: Asthma
  2. SYMBICORT [Suspect]
     Active Substance: BUDESONIDE\FORMOTEROL FUMARATE DIHYDRATE
     Indication: Bronchiectasis
  3. CICLESONIDE [Suspect]
     Active Substance: CICLESONIDE
     Indication: Asthma
  4. CICLESONIDE [Suspect]
     Active Substance: CICLESONIDE
     Indication: Bronchiectasis

REACTIONS (12)
  - Dizziness [Not Recovered/Not Resolved]
  - Palpitations [Not Recovered/Not Resolved]
  - Muscle spasms [Not Recovered/Not Resolved]
  - Vision blurred [Not Recovered/Not Resolved]
  - Dyspnoea [Not Recovered/Not Resolved]
  - Dyspepsia [Not Recovered/Not Resolved]
  - Epigastric discomfort [Not Recovered/Not Resolved]
  - Intraocular pressure increased [Not Recovered/Not Resolved]
  - Cough [Not Recovered/Not Resolved]
  - Angina pectoris [Not Recovered/Not Resolved]
  - Cataract [Not Recovered/Not Resolved]
  - Glaucoma [Not Recovered/Not Resolved]
